FAERS Safety Report 7245356-X (Version None)
Quarter: 2011Q1

REPORT INFORMATION
  Report Type: 
  Country: None (occurrence: None)
  Receive Date: 20110126
  Receipt Date: 20110118
  Transmission Date: 20110831
  Serious: No
  Sender: FDA-Public Use
  Company Number: US-PFIZER INC-US-WYE-H17144010

PATIENT
  Weight: 52.6 kg

DRUGS (2)
  1. PRISTIQ [Suspect]
     Indication: DEPRESSION
     Dosage: 50 MG, 1X/DAY
     Route: 065
     Dates: end: 20100821
  2. PRISTIQ [Suspect]
     Indication: FIBROMYALGIA

REACTIONS (1)
  - INCONTINENCE [None]
